FAERS Safety Report 6846067-2 (Version None)
Quarter: 2010Q3

REPORT INFORMATION
  Report Type: 
  Country: None (occurrence: None)
  Receive Date: 20100715
  Receipt Date: 20080521
  Transmission Date: 20110219
  Serious: No
  Sender: FDA-Public Use
  Company Number: US-PFIZER INC-2007074126

PATIENT
  Sex: Female
  Weight: 54.4 kg

DRUGS (8)
  1. CHANTIX [Suspect]
     Indication: SMOKING CESSATION THERAPY
     Route: 048
     Dates: start: 20070824
  2. VIRAMUNE [Concomitant]
  3. PRAVACHOL [Concomitant]
  4. REMERON [Concomitant]
  5. ZYPREXA [Concomitant]
  6. SEPTRA DS [Concomitant]
  7. REYATAZ [Concomitant]
  8. COMBIVIR [Concomitant]

REACTIONS (1)
  - HERPES ZOSTER [None]
